FAERS Safety Report 4300981-0 (Version None)
Quarter: 2004Q1

REPORT INFORMATION
  Report Type: 
  Country: None (occurrence: None)
  Receive Date: 20040219
  Receipt Date: 20040210
  Transmission Date: 20041129
  Serious: Yes (Hospitalization)
  Sender: FDA-Public Use
  Company Number: 2004196371JP

PATIENT
  Age: 57 Year
  Sex: Female
  Weight: 44 kg

DRUGS (8)
  1. CABERGOLINE [Suspect]
     Indication: PARKINSON'S DISEASE
     Dosage: ORAL;  3 MG/DAY; 2MG/DAY; 1 MG/DAY
     Route: 048
     Dates: end: 20031201
  2. CABERGOLINE [Suspect]
     Indication: PARKINSON'S DISEASE
     Dosage: ORAL;  3 MG/DAY; 2MG/DAY; 1 MG/DAY
     Route: 048
     Dates: start: 20000501
  3. CABERGOLINE [Suspect]
     Indication: PARKINSON'S DISEASE
     Dosage: ORAL;  3 MG/DAY; 2MG/DAY; 1 MG/DAY
     Route: 048
     Dates: start: 20010607
  4. PERGOLIDE MESYLATE [Suspect]
     Indication: PARKINSON'S DISEASE
     Dosage: ORAL
     Route: 048
     Dates: start: 19960101, end: 20000501
  5. MENESIT [Concomitant]
  6. SELEGILINE HYDROCHLORIDE [Concomitant]
  7. NEUROTROPIN (ORGAN LYSATE, STANDARDIZED) [Concomitant]
  8. GASLON (IRSOGLADINE MALEATE) [Concomitant]

REACTIONS (3)
  - FEELING ABNORMAL [None]
  - MUSCULAR WEAKNESS [None]
  - POSTURE ABNORMAL [None]
